FAERS Safety Report 12149591 (Version 2)
Quarter: 2018Q1

REPORT INFORMATION
  Report Type: Spontaneous
  Country: CA (occurrence: CA)
  Receive Date: 20160304
  Receipt Date: 20180330
  Transmission Date: 20180508
  Serious: Yes (Hospitalization, Other)
  Sender: FDA-Public Use
  Company Number: CA-SA-2016SA036736

PATIENT
  Age: 67 Year
  Sex: Female

DRUGS (16)
  1. CELLCEPT [Concomitant]
     Active Substance: MYCOPHENOLATE MOFETIL\MYCOPHENOLATE MOFETIL HYDROCHLORIDE
     Route: 065
  2. CIPROFLOXACIN HYDROCHLORIDE. [Concomitant]
     Active Substance: CIPROFLOXACIN HYDROCHLORIDE
     Route: 048
  3. IRON [Concomitant]
     Active Substance: IRON
     Route: 042
  4. MENINGOCOCCAL POLYSACCHARIDE VACCINE A NOS [Suspect]
     Active Substance: MENINGOCOCCAL POLYSACCHARIDE VACCINE A\NEISSERIA MENINGITIDIS GROUP A CAPSULAR POLYSACCHARIDE ANTIGEN
     Indication: IMMUNISATION
     Route: 030
  5. BISOPROLOL [Concomitant]
     Active Substance: BISOPROLOL
     Route: 048
  6. SOLIRIS [Suspect]
     Active Substance: ECULIZUMAB
     Route: 042
  7. APO-SULFATRIM [Concomitant]
     Active Substance: SULFAMETHOXAZOLE\TRIMETHOPRIM
     Route: 048
  8. SOLIRIS [Suspect]
     Active Substance: ECULIZUMAB
     Route: 042
     Dates: start: 20150820
  9. RISEDRONATE [Concomitant]
     Active Substance: RISEDRONATE SODIUM
     Route: 048
  10. SODIUM FLUORIDE. [Concomitant]
     Active Substance: SODIUM FLUORIDE
     Route: 065
  11. AMLODIPINE [Concomitant]
     Active Substance: AMLODIPINE BESYLATE
     Route: 048
  12. IRBESARTAN. [Suspect]
     Active Substance: IRBESARTAN
     Indication: PRODUCT USED FOR UNKNOWN INDICATION
     Route: 048
  13. RAPAMUNE [Suspect]
     Active Substance: SIROLIMUS
     Route: 048
  14. MYFORTIC [Suspect]
     Active Substance: MYCOPHENOLATE SODIUM
     Indication: IMMUNOSUPPRESSANT DRUG THERAPY
     Route: 048
     Dates: start: 20140911
  15. DEXILANT [Concomitant]
     Active Substance: DEXLANSOPRAZOLE
     Route: 048
  16. VALGANCICLOVIR HYDROCHLORIDE. [Concomitant]
     Active Substance: VALGANCICLOVIR HYDROCHLORIDE
     Route: 065

REACTIONS (32)
  - Dyspnoea exertional [Recovering/Resolving]
  - Haemoglobin decreased [Unknown]
  - Musculoskeletal stiffness [Unknown]
  - Nausea [Recovering/Resolving]
  - Abdominal pain [Recovered/Resolved]
  - Joint swelling [Recovered/Resolved]
  - Abdominal discomfort [Recovering/Resolving]
  - Faeces soft [Recovering/Resolving]
  - Oedema peripheral [Unknown]
  - Swelling face [Recovered/Resolved]
  - Viral infection [Recovering/Resolving]
  - Dysphonia [Recovering/Resolving]
  - Blood iron decreased [Unknown]
  - Cough [Recovering/Resolving]
  - Pyrexia [Recovered/Resolved]
  - Nasopharyngitis [Recovering/Resolving]
  - Rhinorrhoea [Unknown]
  - White blood cell count decreased [Recovering/Resolving]
  - Blood pressure decreased [Recovering/Resolving]
  - Chest discomfort [Recovering/Resolving]
  - Diarrhoea [Recovering/Resolving]
  - Infection in an immunocompromised host [Recovering/Resolving]
  - Blood creatinine increased [Unknown]
  - Discomfort [Unknown]
  - Weight decreased [Unknown]
  - Fatigue [Unknown]
  - Peripheral swelling [Recovered/Resolved]
  - Abdominal pain [Recovering/Resolving]
  - Oropharyngeal pain [Unknown]
  - Pain [Unknown]
  - Blood disorder [Unknown]
  - Dizziness [Unknown]

NARRATIVE: CASE EVENT DATE: 201412
